FAERS Safety Report 4928806-0 (Version None)
Quarter: 2006Q1

REPORT INFORMATION
  Report Type: 
  Country: None (occurrence: None)
  Receive Date: 20060227
  Receipt Date: 20060227
  Transmission Date: 20060701
  Serious: No
  Sender: FDA-Public Use
  Company Number: None

PATIENT
  Age: 52 Year
  Sex: Male
  Weight: 69.8539 kg

DRUGS (1)
  1. SENSODYNE EXTRA WHITENING MAXIUM STRENGTH GLAXOSMITHKLINE [Suspect]
     Dates: start: 20060221, end: 20060224

REACTIONS (1)
  - ORAL MUCOSAL EXFOLIATION [None]
